FAERS Safety Report 14810324 (Version 2)
Quarter: 2018Q3

REPORT INFORMATION
  Report Type: Report from Study
  Country: US (occurrence: US)
  Receive Date: 20180425
  Receipt Date: 20180719
  Transmission Date: 20181010
  Serious: No
  Sender: FDA-Public Use
  Company Number: US-AMGEN-USASL2018028686

PATIENT
  Age: 74 Year
  Sex: Female

DRUGS (3)
  1. LIPITOR [Concomitant]
     Active Substance: ATORVASTATIN CALCIUM
  2. PRALUENT [Concomitant]
     Active Substance: ALIROCUMAB
  3. REPATHA [Suspect]
     Active Substance: EVOLOCUMAB
     Indication: HYPERCHOLESTEROLAEMIA
     Dosage: 140 MG, Q2WK
     Route: 065

REACTIONS (8)
  - Gait disturbance [Unknown]
  - Injection site erythema [Unknown]
  - Pruritus [Unknown]
  - Myalgia [Unknown]
  - Rash [Unknown]
  - Generalised erythema [Unknown]
  - Injection site pruritus [Unknown]
  - Rhinorrhoea [Recovered/Resolved]
